FAERS Safety Report 8975041 (Version 1)
Quarter: 2012Q4

REPORT INFORMATION
  Report Type: 
  Country: GB (occurrence: GB)
  Receive Date: 20121219
  Receipt Date: 20121219
  Transmission Date: 20130627
  Serious: Yes (Disabling, Other)
  Sender: FDA-Public Use
  Company Number: GB-ELI_LILLY_AND_COMPANY-GB201212005356

PATIENT
  Age: 52 Year
  Sex: Male
  Weight: 100 kg

DRUGS (3)
  1. FLUOXETINE [Suspect]
     Indication: DEPRESSION
     Dosage: 0.5 mg, qd
     Route: 048
     Dates: start: 20110509, end: 20110527
  2. MIRTAZAPINE [Concomitant]
     Indication: DEPRESSION
     Dosage: 0.3 mg, single
     Route: 048
     Dates: start: 20110610, end: 20110610
  3. IBUPROFEN [Concomitant]

REACTIONS (2)
  - Toxicity to various agents [Recovered/Resolved]
  - Hypersomnia [Recovered/Resolved]
